FAERS Safety Report 15591630 (Version 3)
Quarter: 2018Q4

REPORT INFORMATION
  Report Type: Spontaneous
  Country: CN (occurrence: CN)
  Receive Date: 20181107
  Receipt Date: 20181115
  Transmission Date: 20190205
  Serious: Yes (Other)
  Sender: FDA-Public Use
  Company Number: CN-PFIZER INC-2018453508

PATIENT
  Age: 59 Year
  Sex: Male

DRUGS (2)
  1. AMIODARONE HCL [Suspect]
     Active Substance: AMIODARONE HYDROCHLORIDE
     Indication: ARRHYTHMIA
     Dosage: 600 MG, 1X/DAY (FOR HALF A MONTH)
     Route: 065
     Dates: end: 2016
  2. METOPROLOL. [Suspect]
     Active Substance: METOPROLOL
     Indication: ARRHYTHMIA
     Dosage: 47.5 MG, 1X/DAY (FOR HALF A MONTH)
     Route: 065
     Dates: end: 2016

REACTIONS (1)
  - Bradycardia [Unknown]
